FAERS Safety Report 7372405-0 (Version None)
Quarter: 2011Q1

REPORT INFORMATION
  Report Type: 
  Country: None (occurrence: None)
  Receive Date: 20110324
  Receipt Date: 20110317
  Transmission Date: 20110831
  Serious: Yes (Hospitalization)
  Sender: FDA-Public Use
  Company Number: BR-US-EMD SERONO, INC.-7010716

PATIENT
  Sex: Female

DRUGS (7)
  1. ASPIRIN [Concomitant]
  2. RETEMIC [Concomitant]
  3. METFORMIN HCL [Concomitant]
  4. REBIF [Suspect]
     Indication: RELAPSING-REMITTING MULTIPLE SCLEROSIS
     Route: 058
     Dates: start: 20020101, end: 20101201
  5. PURAN T4 (LEVOTHYROXINE) [Concomitant]
  6. VASOGARD (CILOSTASOL) [Concomitant]
  7. OMEPRAZOLE [Concomitant]

REACTIONS (9)
  - POLLAKIURIA [None]
  - ERYSIPELAS [None]
  - FALL [None]
  - HERNIA [None]
  - INCOHERENT [None]
  - INAPPROPRIATE SCHEDULE OF DRUG ADMINISTRATION [None]
  - MEMORY IMPAIRMENT [None]
  - CELLULITIS [None]
  - HYPOAESTHESIA [None]
